FAERS Safety Report 12278813 (Version 3)
Quarter: 2016Q3

REPORT INFORMATION
  Report Type: Report from Study
  Country: BR (occurrence: BR)
  Receive Date: 20160418
  Receipt Date: 20160829
  Transmission Date: 20161109
  Serious: Yes (Death, Hospitalization)
  Sender: FDA-Public Use
  Company Number: PHHY2016BR036071

PATIENT
  Sex: Female
  Weight: 55 kg

DRUGS (2)
  1. SANDOSTATIN LAR DEPOT [Suspect]
     Active Substance: OCTREOTIDE ACETATE
     Indication: ACROMEGALY
     Dosage: 10 MG, QMO (EVERY 28 DAYS)
     Route: 030
     Dates: start: 2014, end: 2015
  2. SANDOSTATIN LAR DEPOT [Suspect]
     Active Substance: OCTREOTIDE ACETATE
     Dosage: 10 MG, QMO
     Route: 030
     Dates: start: 2016

REACTIONS (7)
  - Gastrointestinal disorder [Unknown]
  - Pain [Unknown]
  - Abdominal pain [Unknown]
  - General physical health deterioration [Fatal]
  - Somnolence [Unknown]
  - Abnormal dreams [Unknown]
  - Gastrointestinal pain [Unknown]
